FAERS Safety Report 4421654-X (Version None)
Quarter: 2004Q3

REPORT INFORMATION
  Report Type: 
  Country: None (occurrence: None)
  Receive Date: 20040804
  Receipt Date: 20040722
  Transmission Date: 20050211
  Serious: Yes (Hospitalization)
  Sender: FDA-Public Use
  Company Number: CERZ-10608

PATIENT
  Age: 3 Year
  Sex: Male
  Weight: 15.5 kg

DRUGS (1)
  1. CEREZYME [Suspect]
     Indication: GAUCHER'S DISEASE
     Dosage: 1000 UNITS Q2WKS IV
     Route: 042
     Dates: start: 20021101

REACTIONS (5)
  - ADENOIDAL HYPERTROPHY [None]
  - INSOMNIA [None]
  - SLEEP APNOEA SYNDROME [None]
  - SNORING [None]
  - TONSILLAR HYPERTROPHY [None]
